FAERS Safety Report 5375050-1 (Version None)
Quarter: 2007Q2

REPORT INFORMATION
  Report Type: 
  Country: None (occurrence: None)
  Receive Date: 20070629
  Receipt Date: 20070313
  Transmission Date: 20071010
  Serious: No
  Sender: FDA-Public Use
  Company Number: A0643069A

PATIENT
  Age: 39 Year
  Sex: Female

DRUGS (4)
  1. AVANDARYL [Suspect]
     Dosage: 1TAB PER DAY
     Route: 048
     Dates: start: 20070201
  2. LANTUS [Concomitant]
  3. TRAMADOL HCL [Concomitant]
  4. DEMEROL [Concomitant]

REACTIONS (1)
  - URINE ALCOHOL TEST POSITIVE [None]
